FAERS Safety Report 19704396 (Version 1)
Quarter: 2021Q3

REPORT INFORMATION
  Report Type: Spontaneous
  Country: US (occurrence: US)
  Receive Date: 20210813
  Receipt Date: 20210813
  Transmission Date: 20211014
  Serious: Yes (Hospitalization)
  Sender: FDA-Public Use
  Company Number: None

PATIENT
  Age: 76 Year
  Sex: Male

DRUGS (1)
  1. ZYTIGA [Suspect]
     Active Substance: ABIRATERONE ACETATE
     Indication: PROSTATE CANCER
     Route: 048
     Dates: start: 20191114

REACTIONS (4)
  - Lumbar vertebral fracture [None]
  - Dizziness [None]
  - Dehydration [None]
  - Blood pressure systolic abnormal [None]

NARRATIVE: CASE EVENT DATE: 20210604
